FAERS Safety Report 13486177 (Version 1)
Quarter: 2017Q2

REPORT INFORMATION
  Report Type: Spontaneous
  Country: DE (occurrence: DE)
  Receive Date: 20170426
  Receipt Date: 20170426
  Transmission Date: 20170830
  Serious: Yes (Other)
  Sender: FDA-Public Use
  Company Number: DE-SA-2017SA017142

PATIENT
  Age: 37 Year
  Sex: Male
  Weight: 70 kg

DRUGS (3)
  1. TRILEPTAL [Concomitant]
     Active Substance: OXCARBAZEPINE
     Indication: GENERALISED TONIC-CLONIC SEIZURE
     Dosage: DOSE: 1-0.5-1 / DAILY 1500 MG
     Route: 048
  2. FEXOFENADINE HYDROCHLORIDE. [Suspect]
     Active Substance: FEXOFENADINE HYDROCHLORIDE
     Indication: URTICARIA
     Route: 048
     Dates: start: 20161213
  3. OSPOLOT [Concomitant]
     Active Substance: SULTHIAME
     Indication: GENERALISED TONIC-CLONIC SEIZURE
     Dosage: DOSE: 1-0.5-1 / DAILY 500MG
     Route: 048

REACTIONS (2)
  - Seizure [Recovered/Resolved]
  - Dyskinesia [Recovered/Resolved]

NARRATIVE: CASE EVENT DATE: 20161225
